FAERS Safety Report 6815240-1 (Version None)
Quarter: 2010Q3

REPORT INFORMATION
  Report Type: 
  Country: None (occurrence: None)
  Receive Date: 20100701
  Receipt Date: 20100701
  Transmission Date: 20110219
  Serious: Yes (Hospitalization)
  Sender: FDA-Public Use
  Company Number: None

PATIENT
  Age: 57 Year
  Sex: Male

DRUGS (3)
  1. LISINOPRIL [Suspect]
     Indication: DIABETES MELLITUS
     Dosage: 20 MG EVERY DAY PO
     Route: 048
     Dates: start: 20100129, end: 20100609
  2. LISINOPRIL [Suspect]
     Indication: HYPERTENSION
     Dosage: 20 MG EVERY DAY PO
     Route: 048
     Dates: start: 20100129, end: 20100609
  3. LISINOPRIL [Suspect]
     Indication: MICROALBUMINURIA
     Dosage: 20 MG EVERY DAY PO
     Route: 048
     Dates: start: 20100129, end: 20100609

REACTIONS (3)
  - ANXIETY [None]
  - ELECTROCARDIOGRAM CHANGE [None]
  - HYPERKALAEMIA [None]
